FAERS Safety Report 9377251 (Version 1)
Quarter: 2013Q3

REPORT INFORMATION
  Report Type: Spontaneous
  Country: US (occurrence: US)
  Receive Date: 20130701
  Receipt Date: 20130701
  Transmission Date: 20140515
  Serious: No
  Sender: FDA-Public Use
  Company Number: US-PFIZER INC-2013191356

PATIENT
  Age: 19 Year
  Sex: Female

DRUGS (3)
  1. METHOTREXATE SODIUM [Suspect]
     Dosage: UNK
     Dates: start: 2001
  2. METHOTREXATE SODIUM [Suspect]
     Dosage: UNK
     Dates: start: 2010, end: 2010
  3. HUMIRA [Concomitant]
     Dosage: UNK
     Dates: start: 2006

REACTIONS (2)
  - Nausea [Recovered/Resolved]
  - Vomiting [Recovered/Resolved]
